FAERS Safety Report 4507871-9 (Version None)
Quarter: 2004Q4

REPORT INFORMATION
  Report Type: 
  Country: None (occurrence: None)
  Receive Date: 20041123
  Receipt Date: 20041116
  Transmission Date: 20050328
  Serious: Yes (Hospitalization)
  Sender: FDA-Public Use
  Company Number: AU-MERCK-0411AUS00126

PATIENT
  Age: 65 Year
  Sex: Male

DRUGS (3)
  1. ZOCOR [Suspect]
     Indication: BLOOD CHOLESTEROL INCREASED
     Route: 048
     Dates: start: 19940101, end: 20040101
  2. ZOCOR [Suspect]
     Route: 048
     Dates: start: 20040101
  3. VERAPAMIL HYDROCHLORIDE [Concomitant]
     Route: 065

REACTIONS (3)
  - AMNESIA [None]
  - CHEST PAIN [None]
  - DYSPEPSIA [None]
